FAERS Safety Report 6942835-7 (Version None)
Quarter: 2010Q3

REPORT INFORMATION
  Report Type: 
  Country: None (occurrence: None)
  Receive Date: 20100826
  Receipt Date: 20100812
  Transmission Date: 20110219
  Serious: Yes (Hospitalization)
  Sender: FDA-Public Use
  Company Number: KR-BAYER-201015017GPV

PATIENT
  Age: 54 Year
  Sex: Female
  Weight: 46 kg

DRUGS (93)
  1. SORAFENIB [Suspect]
     Indication: OVARIAN EPITHELIAL CANCER
     Dosage: TOTAL DAILY DOSE: 800 MG
     Route: 048
     Dates: start: 20091215, end: 20100204
  2. TROLAC [Concomitant]
     Indication: ABDOMINAL PAIN
     Route: 030
     Dates: start: 20091216, end: 20091216
  3. TROLAC [Concomitant]
     Route: 030
     Dates: start: 20091218, end: 20091218
  4. TROLAC [Concomitant]
     Dosage: TOTAL DAILY DOSE: 60 MG
     Route: 030
     Dates: start: 20091220, end: 20091220
  5. TROLAC [Concomitant]
     Route: 042
     Dates: start: 20081228, end: 20081228
  6. TROLAC [Concomitant]
     Dates: start: 20100205, end: 20100205
  7. TROLAC [Concomitant]
     Route: 042
     Dates: start: 20100205, end: 20100205
  8. TRAMADOL HCL [Concomitant]
     Indication: PAIN MANAGEMENT
     Route: 030
     Dates: start: 20100228, end: 20100308
  9. ULTRACET [Concomitant]
     Indication: PAIN MANAGEMENT
     Route: 048
     Dates: start: 20100308
  10. ULTRACET [Concomitant]
     Route: 048
     Dates: start: 20090728, end: 20090730
  11. PHAZYME [Concomitant]
     Indication: DYSPEPSIA
     Route: 048
     Dates: start: 20081020, end: 20081220
  12. PHAZYME [Concomitant]
     Route: 048
     Dates: start: 20100308
  13. MAGNESIUM OXIDE [Concomitant]
     Indication: CONSTIPATION PROPHYLAXIS
     Route: 048
     Dates: start: 20100308
  14. GABAPENTIN [Concomitant]
     Indication: NEUROPATHY PERIPHERAL
     Dosage: TOTAL DAILY DOSE: 900 MG
     Route: 042
     Dates: start: 20090104, end: 20090104
  15. GABAPENTIN [Concomitant]
     Route: 048
     Dates: start: 20081020, end: 20090309
  16. GABAPENTIN [Concomitant]
     Route: 048
     Dates: start: 20090427, end: 20090430
  17. STILLEN [Concomitant]
     Indication: PROPHYLAXIS
     Route: 048
     Dates: start: 20081020, end: 20081203
  18. MORPHINE [Concomitant]
     Indication: ABDOMINAL PAIN
     Route: 042
     Dates: start: 20090723, end: 20090727
  19. MORPHINE [Concomitant]
     Route: 042
     Dates: start: 20081127, end: 20081127
  20. MORPHINE [Concomitant]
     Route: 042
     Dates: start: 20081213, end: 20081213
  21. MORPHINE [Concomitant]
     Route: 042
     Dates: start: 20081226, end: 20081226
  22. NORMAL SALINE [Concomitant]
     Indication: ABDOMINAL PAIN
     Route: 042
     Dates: start: 20081128, end: 20081128
  23. NORMAL SALINE [Concomitant]
     Dosage: TOTAL DAILY DOSE: 40 ML
     Route: 042
     Dates: start: 20090722, end: 20090726
  24. NORMAL SALINE [Concomitant]
     Route: 042
     Dates: start: 20100205, end: 20100205
  25. NORMAL SALINE [Concomitant]
     Route: 042
     Dates: start: 20081226, end: 20081229
  26. NORMAL SALINE [Concomitant]
     Route: 042
     Dates: start: 20081213, end: 20081213
  27. NORMAL SALINE [Concomitant]
     Route: 042
     Dates: start: 20090723, end: 20090723
  28. NORMAL SALINE [Concomitant]
     Route: 042
     Dates: start: 20090623, end: 20090727
  29. MEGESTROL [Concomitant]
     Indication: DECREASED APPETITE
     Route: 048
     Dates: start: 20081222, end: 20081222
  30. DEXTROSE 5% [Concomitant]
     Indication: ABDOMINAL PAIN
     Route: 042
     Dates: start: 20081231, end: 20081231
  31. DEXTROSE 5% [Concomitant]
     Route: 042
     Dates: start: 20081229, end: 20091229
  32. DEXTROSE 5% [Concomitant]
     Route: 042
     Dates: start: 20081127, end: 20081202
  33. DEXTROSE 5% [Concomitant]
     Route: 042
     Dates: start: 20081222, end: 20081222
  34. DEXTROSE 5% [Concomitant]
     Dosage: TOTAL DAILY DOSE: 2 L
     Route: 042
     Dates: start: 20090723, end: 20090723
  35. LASIX [Concomitant]
     Indication: ABDOMINAL PAIN
     Route: 042
     Dates: start: 20081226, end: 20081227
  36. TRIDOL [Concomitant]
     Indication: ABDOMINAL PAIN
     Route: 042
     Dates: start: 20081226, end: 20090106
  37. NUTRIFLEX PERI [Concomitant]
     Route: 042
     Dates: start: 20081230, end: 20081230
  38. CLETAMIN [Concomitant]
     Indication: DECREASED APPETITE
     Route: 042
     Dates: start: 20081222, end: 20081222
  39. CLETAMIN [Concomitant]
     Route: 042
     Dates: start: 20081229, end: 20081231
  40. CLETAMIN [Concomitant]
     Route: 042
     Dates: start: 20090106, end: 20090106
  41. CLETAMIN [Concomitant]
     Route: 042
     Dates: start: 20090103, end: 20090103
  42. KALITAKER POWDER [Concomitant]
     Indication: PANCREATIC PSEUDOCYST
     Dosage: 1 PACK
     Route: 048
     Dates: start: 20081226, end: 20081226
  43. CALCIUM GLUCONATE [Concomitant]
     Indication: PANCREATIC PSEUDOCYST
     Route: 042
     Dates: start: 20081226, end: 20081226
  44. PREPENEM [Concomitant]
     Indication: PANCREATIC PSEUDOCYST
     Route: 042
     Dates: start: 20081228, end: 20081228
  45. K-CONTIN [Concomitant]
     Indication: PANCREATIC PSEUDOCYST
     Route: 048
     Dates: start: 20081231, end: 20090102
  46. CITOPCIN [Concomitant]
     Indication: CYSTITIS
     Dosage: TOTAL DAILY DOSE: 400 MG
     Route: 042
     Dates: start: 20081127, end: 20091129
  47. CITOPCIN [Concomitant]
     Dosage: TOTAL DAILY DOSE: 500 MG
     Route: 048
     Dates: start: 20091221, end: 20091228
  48. HARTMAN [Concomitant]
     Indication: PROPHYLAXIS AGAINST DEHYDRATION
     Route: 042
     Dates: start: 20081127, end: 20081127
  49. HARTMAN [Concomitant]
     Route: 042
     Dates: start: 20081230, end: 20081230
  50. HARTMAN [Concomitant]
     Route: 042
     Dates: start: 20090722, end: 20090725
  51. HARTMAN [Concomitant]
     Route: 042
     Dates: start: 20090723, end: 20090723
  52. RED BLOOD CELLS [Concomitant]
     Indication: ANAEMIA
     Dosage: TOTAL DAILY DOSE: 640 ML
     Route: 042
     Dates: start: 20081129, end: 20081129
  53. TAZOCIN [Concomitant]
     Indication: INFECTION PROPHYLAXIS
     Dosage: TOTAL DAILY DOSE: 13.5 G
     Route: 042
     Dates: start: 20081128, end: 20081202
  54. DEMEROL [Concomitant]
     Indication: PAIN PROPHYLAXIS
     Route: 042
     Dates: start: 20081129, end: 20081203
  55. HUMULIN RI [Concomitant]
     Indication: PROPHYLAXIS
     Route: 042
     Dates: start: 20081226, end: 20081226
  56. TRIZEL [Concomitant]
     Indication: PANCREATIC PSEUDOCYST
     Dosage: TOTAL DAILY DOSE: 1500 MG
     Route: 042
     Dates: start: 20081228, end: 20081228
  57. CEFOTAXIM [Concomitant]
     Indication: PANCREATIC PSEUDOCYST
     Dosage: TOTAL DAILY DOSE: 3 G
     Route: 042
     Dates: start: 20081228, end: 20081228
  58. DEXTROSE W KCL + NACL [Concomitant]
     Indication: DECREASED APPETITE
     Route: 042
     Dates: start: 20081230, end: 20081231
  59. DEXTROSE W KCL + NACL [Concomitant]
     Route: 042
     Dates: start: 20090330, end: 20090330
  60. DEXTROSE W KCL + NACL [Concomitant]
     Route: 042
     Dates: start: 20090105, end: 20090106
  61. DEXTROSE W KCL + NACL [Concomitant]
     Route: 042
     Dates: start: 20091220, end: 20091220
  62. LIPOPID 10% [Concomitant]
     Indication: DECREASED APPETITE
     Route: 042
     Dates: start: 20090101, end: 20090101
  63. MAGMIL [Concomitant]
     Indication: GASTRITIS PROPHYLAXIS
     Dosage: TOTAL DAILY DOSE: 1500 MG
     Route: 048
     Dates: start: 20090102, end: 20090102
  64. CACO3 [Concomitant]
     Indication: PROPHYLAXIS
     Dosage: TOTAL DAILY DOSE: 1500 MG
     Route: 048
     Dates: start: 20090102, end: 20090102
  65. VENOFERRUM [Concomitant]
     Indication: DIZZINESS
     Route: 042
     Dates: start: 20090105, end: 20090105
  66. LEGALON [Concomitant]
     Indication: HEPATIC ENZYME INCREASED
     Dosage: TOTAL DAILY DOSE: 420 MG
     Route: 042
     Dates: start: 20090212, end: 20090309
  67. VITAMIN B COMPLEX CAP [Concomitant]
     Indication: HEPATIC ENZYME INCREASED
     Route: 048
     Dates: start: 20090212, end: 20090309
  68. URSA [Concomitant]
     Indication: HEPATIC ENZYME INCREASED
     Dosage: TOTAL DAILY DOSE: 300 MG
     Route: 048
     Dates: start: 20090212, end: 20090309
  69. MULTI VITAMINS CONCENTRATION [Concomitant]
     Indication: ASTHENIA
     Route: 042
     Dates: start: 20090330, end: 20090330
  70. FENTANYL CITRATE [Concomitant]
     Indication: PAIN
     Route: 042
     Dates: start: 20090723, end: 20090727
  71. ZOFRAN [Concomitant]
     Indication: PAIN
     Route: 042
     Dates: start: 20090723, end: 20090727
  72. PENTOTAL SODIUM [Concomitant]
     Indication: COLOSTOMY
     Route: 042
     Dates: start: 20090723, end: 20090723
  73. ROCURONIUM BROMIDE [Concomitant]
     Route: 042
     Dates: start: 20090723, end: 20090723
  74. MOBINUL [Concomitant]
     Route: 042
     Dates: start: 20090723, end: 20090723
  75. PYRINOL [Concomitant]
     Route: 042
     Dates: start: 20090723, end: 20090723
  76. DEXTROSE 10% [Concomitant]
     Indication: PROPHYLAXIS
     Dosage: TOTAL DAILY DOSE: 2 L
     Route: 042
     Dates: start: 20090722, end: 20090727
  77. SODIUM CHLORIDE [Concomitant]
     Indication: PROPHYLAXIS
     Dosage: TOTAL DAILY DOSE: 160 MEQ
     Route: 042
     Dates: start: 20090722, end: 20090727
  78. SODIUM CHLORIDE [Concomitant]
     Dosage: TOTAL DAILY DOSE: 160 MEQ
     Route: 042
     Dates: start: 20090723, end: 20090723
  79. POTASSIUM CHLORIDE [Concomitant]
     Indication: PROPHYLAXIS
     Dosage: TOTAL DAILY DOSE: 80 MEQ
     Route: 042
     Dates: start: 20090722, end: 20090727
  80. ASCORBIC ACID [Concomitant]
     Indication: PROPHYLAXIS
     Dosage: TOTAL DAILY DOSE: 600 MG
     Route: 042
     Dates: start: 20090722, end: 20090727
  81. BEECOM HEXA [Concomitant]
     Indication: PROPHYLAXIS
     Dosage: TOTAL DAILY DOSE: 4 ML
     Route: 042
     Dates: start: 20090722, end: 20090727
  82. GASTER [Concomitant]
     Indication: PROPHYLAXIS
     Dosage: TOTAL DAILY DOSE: 40 MG
     Route: 042
     Dates: start: 20090722, end: 20090726
  83. GASTER [Concomitant]
     Dosage: TOTAL DAILY DOSE: 40 MG
     Route: 048
     Dates: start: 20091220, end: 20091221
  84. BROMHEXINE [Concomitant]
     Indication: INFECTION PROPHYLAXIS
     Dosage: AS USED: 4 MG
     Route: 042
     Dates: start: 20090723, end: 20090725
  85. CEFOTETAN [Concomitant]
     Indication: INFECTION PROPHYLAXIS
     Dosage: TOTAL DAILY DOSE: 3 G
     Route: 042
     Dates: start: 20090723, end: 20090724
  86. ALBUMINAR-20 [Concomitant]
     Indication: PROPHYLAXIS
     Route: 042
     Dates: start: 20090725, end: 20090725
  87. PHAZYME [Concomitant]
     Indication: PROPHYLAXIS
     Dosage: TOTAL DAILY DOSE: 3 DF
     Route: 048
     Dates: start: 20091221, end: 20091228
  88. PHAZYME [Concomitant]
     Dosage: TOTAL DAILY DOSE: 3 DF
     Route: 048
     Dates: start: 20090727, end: 20090730
  89. ACETAMINOPHEN [Concomitant]
     Indication: PAIN
     Dosage: TOTAL DAILY DOSE: 1950 MG
     Route: 048
     Dates: start: 20091216, end: 20091217
  90. ACETAMINOPHEN [Concomitant]
     Route: 048
     Dates: start: 20090730, end: 20090817
  91. PROGYNOVA [Concomitant]
     Indication: FLUSHING
     Route: 048
     Dates: start: 20091018
  92. NAXEN-F [Concomitant]
     Indication: PAIN IN EXTREMITY
     Dosage: TOTAL DAILY DOSE: 1000 MG
     Route: 048
     Dates: start: 20091220, end: 20091221
  93. NAXEN-F [Concomitant]
     Dosage: TOTAL DAILY DOSE: 1000 MG
     Route: 048
     Dates: start: 20090205, end: 20090219

REACTIONS (2)
  - FEMALE GENITAL TRACT FISTULA [None]
  - INTESTINAL FISTULA [None]
